FAERS Safety Report 6213231-5 (Version None)
Quarter: 2009Q2

REPORT INFORMATION
  Report Type: 
  Country: None (occurrence: None)
  Receive Date: 20090603
  Receipt Date: 20090602
  Transmission Date: 20091009
  Serious: Yes (Hospitalization, Disabling)
  Sender: FDA-Public Use
  Company Number: FI-AVENTIS-200915444GDDC

PATIENT
  Age: 74 Year
  Sex: Male
  Weight: 80 kg

DRUGS (8)
  1. TAXOTERE [Suspect]
     Route: 042
     Dates: start: 20081101, end: 20090301
  2. DEXAMETHASONE [Suspect]
     Route: 048
     Dates: end: 20090528
  3. ZOMETA [Concomitant]
     Route: 042
     Dates: start: 20081201
  4. KLEXANE                            /01708202/ [Concomitant]
     Indication: THROMBOSIS PROPHYLAXIS
     Route: 058
  5. LYRICA [Concomitant]
     Route: 048
  6. NEXIUM [Concomitant]
     Route: 048
  7. SELOKENZOC [Concomitant]
     Route: 048
  8. RAMIPRIL [Concomitant]
     Route: 048

REACTIONS (5)
  - ANAEMIA [None]
  - AXONAL NEUROPATHY [None]
  - PARALYSIS [None]
  - PARAPLEGIA [None]
  - PERIPHERAL SENSORY NEUROPATHY [None]
